FAERS Safety Report 10187021 (Version 1)
Quarter: 2014Q2

REPORT INFORMATION
  Report Type: Report from Study
  Country: US (occurrence: US)
  Receive Date: 20140522
  Receipt Date: 20140522
  Transmission Date: 20141212
  Serious: Yes (Hospitalization, Other)
  Sender: FDA-Public Use
  Company Number: US-JNJFOC-20140509539

PATIENT
  Age: 59 Year
  Sex: Male
  Weight: 102.06 kg

DRUGS (6)
  1. REMICADE [Suspect]
     Indication: COLITIS ULCERATIVE
     Route: 042
  2. ASACOL [Suspect]
     Indication: COLITIS ULCERATIVE
     Dosage: DOSE: 1600MG/TABLET
     Route: 065
     Dates: start: 2013
  3. ASPIRIN [Concomitant]
     Dosage: DAILY
     Route: 048
  4. PRAVASTATIN [Concomitant]
     Indication: BLOOD CHOLESTEROL
     Dosage: DAILY
     Route: 048
     Dates: start: 2013
  5. COREG [Concomitant]
     Indication: CARDIAC DISORDER
     Route: 048
     Dates: start: 2004
  6. LISINOPRIL [Concomitant]
     Indication: BLOOD PRESSURE
     Dosage: DAILY
     Route: 048

REACTIONS (7)
  - Cellulitis [Not Recovered/Not Resolved]
  - Ulcer haemorrhage [Unknown]
  - Staphylococcal infection [Recovered/Resolved]
  - Pneumonia [Recovered/Resolved]
  - Wound [Recovered/Resolved]
  - Adverse event [Unknown]
  - Nasopharyngitis [Recovered/Resolved]
